FAERS Safety Report 9635590 (Version 2)
Quarter: 2013Q4

REPORT INFORMATION
  Report Type: Spontaneous
  Country: US (occurrence: US)
  Receive Date: 20131021
  Receipt Date: 20131028
  Transmission Date: 20140711
  Serious: No
  Sender: FDA-Public Use
  Company Number: US-009507513-1310USA008780

PATIENT
  Age: 9 Year
  Sex: Male

DRUGS (1)
  1. CLARITIN CHEWABLE TABLETS [Suspect]
     Indication: PRODUCT USED FOR UNKNOWN INDICATION
     Dosage: UNK, UNKNOWN
     Route: 048
     Dates: start: 20130927, end: 20131003

REACTIONS (6)
  - Depression [Not Recovered/Not Resolved]
  - Decreased appetite [Unknown]
  - Blepharospasm [Not Recovered/Not Resolved]
  - Restlessness [Not Recovered/Not Resolved]
  - Nightmare [Unknown]
  - Mood swings [Unknown]
